FAERS Safety Report 8808962 (Version 1)
Quarter: 2012Q4

REPORT INFORMATION
  Report Type: Spontaneous
  Country: US (occurrence: None)
  Receive Date: 20120920
  Receipt Date: 20120920
  Transmission Date: 20130627
  Serious: Yes (Life-Threatening)
  Sender: FDA-Public Use
  Company Number: None

PATIENT
  Age: 27 Year
  Sex: Male
  Weight: 124 kg

DRUGS (1)
  1. TRAMADOL [Suspect]
     Indication: PAIN
     Dates: start: 20120619, end: 20120619

REACTIONS (1)
  - Angioedema [None]
